FAERS Safety Report 7788539-2 (Version None)
Quarter: 2011Q3

REPORT INFORMATION
  Report Type: 
  Country: None (occurrence: None)
  Receive Date: 20110928
  Receipt Date: 20110912
  Transmission Date: 20111222
  Serious: Yes (Other)
  Sender: FDA-Public Use
  Company Number: C11-036

PATIENT
  Age: 64 Year
  Sex: Male
  Weight: 87.0906 kg

DRUGS (3)
  1. PRE-PEN ALLERQUEST LLC [Suspect]
     Indication: SENSITISATION
     Dosage: DROP, PUNCTURE;ONCE,023
     Dates: start: 20110909
  2. AMOXICILLIN [Suspect]
     Dosage: 400MG, ONCE, 64
  3. PENG, PFIZER [Suspect]
     Dosage: DROP, PUNCTURE;ONCE,023
     Dates: start: 20110909

REACTIONS (3)
  - DIZZINESS [None]
  - BLOOD PRESSURE INCREASED [None]
  - FLUSHING [None]
